FAERS Safety Report 4560197-X (Version None)
Quarter: 2005Q1

REPORT INFORMATION
  Report Type: 
  Country: None (occurrence: None)
  Receive Date: 20050125
  Receipt Date: 20041025
  Transmission Date: 20050727
  Serious: Yes (Hospitalization, Other)
  Sender: FDA-Public Use
  Company Number: FR-NOVOPROD-240045

PATIENT
  Age: 53 Year
  Sex: Female
  Weight: 49 kg

DRUGS (10)
  1. NOVOSEVEN [Suspect]
     Indication: UPPER GASTROINTESTINAL HAEMORRHAGE
     Dosage: 600 UG/KG, 5 DOSES
     Route: 042
     Dates: start: 20041016, end: 20041017
  2. CORTANCYL [Concomitant]
     Dosage: 2.5 MG, QD
     Route: 048
     Dates: start: 20041018
  3. AVLOCARDYL [Concomitant]
     Dosage: 80 MG, QD
     Route: 048
     Dates: start: 20041021
  4. OFLOCET [Concomitant]
     Dosage: 400 MG, QD
     Route: 042
     Dates: start: 20041021
  5. ACUPAN [Concomitant]
     Dosage: 60 MG, QD
     Route: 042
     Dates: start: 20041021
  6. CLAFORAN [Concomitant]
     Dosage: 3 G, QD
     Route: 042
     Dates: start: 20041021
  7. NEXIUM [Concomitant]
     Dosage: 40 MG, QD
     Route: 048
     Dates: start: 20041018
  8. ALDACTONE [Concomitant]
     Dosage: 50 MG, QD
     Route: 048
     Dates: start: 20041023
  9. LASILIX [Concomitant]
     Dosage: 40 MG, QD
     Route: 048
     Dates: start: 20041023
  10. HISTOACRYL [Concomitant]

REACTIONS (4)
  - ENCEPHALOPATHY [None]
  - HEPATIC CIRRHOSIS [None]
  - MULTI-ORGAN FAILURE [None]
  - PORTAL VEIN THROMBOSIS [None]
